FAERS Safety Report 24229498 (Version 1)
Quarter: 2024Q3

REPORT INFORMATION
  Report Type: Spontaneous
  Country: US (occurrence: US)
  Receive Date: 20240820
  Receipt Date: 20240820
  Transmission Date: 20241016
  Serious: No
  Sender: DR REDDYS
  Company Number: US-DRL-USA-LIT/USA/24/0011821

PATIENT
  Age: 39 Year
  Sex: Female

DRUGS (2)
  1. POSACONAZOLE [Suspect]
     Active Substance: POSACONAZOLE
     Indication: Antifungal prophylaxis
     Dosage: VIA NASOGASTRIC TUBE
  2. POSACONAZOLE [Suspect]
     Active Substance: POSACONAZOLE
     Dosage: VIA NASOGASTRIC TUBE

REACTIONS (2)
  - Drug level below therapeutic [Unknown]
  - Wrong technique in product usage process [Unknown]
